FAERS Safety Report 9409384 (Version 1)
Quarter: 2013Q3

REPORT INFORMATION
  Report Type: Spontaneous
  Country: US (occurrence: US)
  Receive Date: 20130719
  Receipt Date: 20130719
  Transmission Date: 20140515
  Serious: No
  Sender: FDA-Public Use
  Company Number: US-BAYER-2013-086418

PATIENT
  Age: 72 Year
  Sex: Male
  Weight: 91 kg

DRUGS (1)
  1. ALEVE TABLET [Suspect]
     Route: 048

REACTIONS (5)
  - Oral mucosal eruption [Not Recovered/Not Resolved]
  - Oral discomfort [Not Recovered/Not Resolved]
  - Swelling face [Recovered/Resolved]
  - Pain [Not Recovered/Not Resolved]
  - Blister [Not Recovered/Not Resolved]
